FAERS Safety Report 16101752 (Version 1)
Quarter: 2019Q1

REPORT INFORMATION
  Report Type: Spontaneous
  Country: FR (occurrence: FR)
  Receive Date: 20190321
  Receipt Date: 20190321
  Transmission Date: 20190418
  Serious: Yes (Death, Hospitalization, Other)
  Sender: FDA-Public Use
  Company Number: FR-PFIZER INC-HQWYE991124FEB06

PATIENT
  Age: 71 Year
  Sex: Female

DRUGS (7)
  1. DURAGESIC [Suspect]
     Active Substance: FENTANYL
     Indication: PERIPHERAL ISCHAEMIA
  2. DURAGESIC [Suspect]
     Active Substance: FENTANYL
     Indication: DIABETIC NEUROPATHY
     Dosage: 50 UG, QOW (EVERY OTHER WEEK)
     Route: 061
     Dates: start: 20051209, end: 20060109
  3. CORDARONE X [Suspect]
     Active Substance: AMIODARONE HYDROCHLORIDE
     Indication: ILL-DEFINED DISORDER
     Dosage: 200 MG, 5IW (5 TIMES PER WEEK)
     Route: 048
     Dates: start: 20051004
  4. PREVISCAN [FLUINDIONE] [Interacting]
     Active Substance: FLUINDIONE
     Indication: ILL-DEFINED DISORDER
     Dosage: UNK
     Route: 048
  5. FLOXYFRAL [Interacting]
     Active Substance: FLUVOXAMINE
     Indication: DEPRESSION
     Dosage: 50 MG, DAILY
     Route: 048
     Dates: start: 20051121, end: 20060109
  6. DURAGESIC [Suspect]
     Active Substance: FENTANYL
     Indication: NEURALGIA
  7. TAHOR [Interacting]
     Active Substance: ATORVASTATIN CALCIUM
     Indication: DYSLIPIDAEMIA
     Dosage: 1 DF, QD
     Route: 048
     Dates: start: 20051209, end: 20060113

REACTIONS (6)
  - Intestinal ischaemia [Fatal]
  - Hallucination [Recovered/Resolved]
  - Drug interaction [Fatal]
  - Disorientation [Recovered/Resolved]
  - International normalised ratio increased [Fatal]
  - Prothrombin time ratio decreased [Fatal]

NARRATIVE: CASE EVENT DATE: 20060109
